FAERS Safety Report 7291824-4 (Version None)
Quarter: 2011Q1

REPORT INFORMATION
  Report Type: 
  Country: None (occurrence: None)
  Receive Date: 20110214
  Receipt Date: 20110210
  Transmission Date: 20110831
  Serious: Yes (Death, Hospitalization)
  Sender: FDA-Public Use
  Company Number: AU-PFIZER INC-2010096279

PATIENT
  Age: 79 Year
  Sex: Male
  Weight: 55 kg

DRUGS (7)
  1. CLOPIDOGREL [Concomitant]
     Indication: CORONARY ARTERY DISEASE
     Dosage: 75 MG, 1X/DAY
     Route: 048
  2. CLOPIDOGREL [Concomitant]
     Indication: STENT PLACEMENT
  3. ENALAPRIL [Concomitant]
     Indication: HYPERTENSION
     Dosage: 20 MG, 1X/DAY
     Route: 048
  4. AMLODIPINE [Concomitant]
     Indication: HYPERTENSION
     Dosage: 5 MG, 1X/DAY
     Route: 048
  5. LIPITOR [Suspect]
     Indication: CARDIOVASCULAR DISORDER
     Dosage: 20 MG, 1X/DAY
     Route: 048
     Dates: start: 20040101, end: 20100810
  6. ACETYLSALICYLIC ACID [Concomitant]
     Indication: CORONARY ARTERY DISEASE
     Dosage: 100 MG, 1X/DAY
     Route: 048
  7. ALLOPURINOL [Concomitant]
     Indication: GOUT
     Dosage: 100 MG, 1X/DAY
     Route: 048

REACTIONS (3)
  - RHABDOMYOLYSIS [None]
  - CARDIO-RESPIRATORY ARREST [None]
  - RENAL FAILURE [None]
